FAERS Safety Report 19626426 (Version 1)
Quarter: 2021Q3

REPORT INFORMATION
  Report Type: Spontaneous
  Country: US (occurrence: US)
  Receive Date: 20210729
  Receipt Date: 20210729
  Transmission Date: 20211014
  Serious: No
  Sender: FDA-Public Use
  Company Number: US-BAYER-2021-184280

PATIENT
  Sex: Male

DRUGS (2)
  1. STOOL SOFTENER (DOCUSATE) [Concomitant]
     Active Substance: DOCUSATE
     Indication: LAXATIVE SUPPORTIVE CARE
  2. MIRALAX [Suspect]
     Active Substance: POLYETHYLENE GLYCOL 3350
     Indication: LAXATIVE SUPPORTIVE CARE
     Dosage: 1 WHOLE BOTTLE A DAY (14 ONCE?DAILY DOSES 8.3 OZ)
     Route: 048

REACTIONS (2)
  - Diarrhoea [Unknown]
  - Off label use [Not Recovered/Not Resolved]
